FAERS Safety Report 12678050 (Version 1)
Quarter: 2016Q3

REPORT INFORMATION
  Report Type: Spontaneous
  Country: US (occurrence: US)
  Receive Date: 20160823
  Receipt Date: 20160823
  Transmission Date: 20161109
  Serious: No
  Sender: FDA-Public Use
  Company Number: US-ELI_LILLY_AND_COMPANY-US201608009979

PATIENT
  Sex: Female

DRUGS (5)
  1. HUMALOG [Suspect]
     Active Substance: INSULIN LISPRO
     Indication: TYPE 2 DIABETES MELLITUS
     Dosage: 22 U, BID
     Route: 065
  2. HUMALOG [Suspect]
     Active Substance: INSULIN LISPRO
     Dosage: 20 U, EACH EVENING
     Route: 065
  3. HUMALOG [Suspect]
     Active Substance: INSULIN LISPRO
     Dosage: 20 U, EACH EVENING
     Route: 065
  4. HUMALOG [Suspect]
     Active Substance: INSULIN LISPRO
     Dosage: 22 U, BID
     Route: 065
  5. LEVEMIR [Concomitant]
     Active Substance: INSULIN DETEMIR
     Dosage: 25 U, EACH EVENING

REACTIONS (1)
  - Blood glucose increased [Recovered/Resolved]
